FAERS Safety Report 13592249 (Version 3)
Quarter: 2017Q3

REPORT INFORMATION
  Report Type: Report from Study
  Country: None (occurrence: US)
  Receive Date: 20170529
  Receipt Date: 20170907
  Transmission Date: 20171127
  Serious: Yes (Other)
  Sender: FDA-Public Use
  Company Number: US-ABBVIE-17K-163-1989178-00

PATIENT
  Age: 51 Year
  Sex: Female
  Weight: 52.21 kg

DRUGS (4)
  1. HUMIRA [Suspect]
     Active Substance: ADALIMUMAB
     Indication: COLITIS ULCERATIVE
     Route: 058
     Dates: start: 201706
  2. HUMIRA [Suspect]
     Active Substance: ADALIMUMAB
     Indication: RHEUMATOID ARTHRITIS
  3. HUMIRA [Suspect]
     Active Substance: ADALIMUMAB
     Indication: CROHN^S DISEASE
     Route: 058
     Dates: start: 20160728, end: 201704
  4. METHOTREXATE. [Concomitant]
     Active Substance: METHOTREXATE
     Indication: RHEUMATOID ARTHRITIS

REACTIONS (4)
  - Procedural pain [Recovered/Resolved]
  - White blood cell count decreased [Recovering/Resolving]
  - Asthenia [Recovering/Resolving]
  - Red blood cell count decreased [Recovering/Resolving]

NARRATIVE: CASE EVENT DATE: 201703
